FAERS Safety Report 19212904 (Version 2)
Quarter: 2021Q2

REPORT INFORMATION
  Report Type: Report from Study
  Country: CA (occurrence: CA)
  Receive Date: 20210504
  Receipt Date: 20210505
  Transmission Date: 20210717
  Serious: Yes (Other)
  Sender: FDA-Public Use
  Company Number: CA-ASTRAZENECA-2021A366931

PATIENT
  Age: 36 Year
  Sex: Female

DRUGS (4)
  1. SINGULAIR [Suspect]
     Active Substance: MONTELUKAST SODIUM
     Indication: ASTHMA
     Dosage: UNKNOWN DOSE, 2 EVERY 1 DAYS
     Route: 065
  2. BUDESONIDE+FORMOTEROL FUMARATE [Suspect]
     Active Substance: BUDESONIDE\FORMOTEROL FUMARATE
     Indication: ASTHMA
     Dosage: UNKNOWN DOSE, 2 EVERY 1 DAYS
     Route: 065
  3. NUCALA [Suspect]
     Active Substance: MEPOLIZUMAB
     Indication: ASTHMA
     Dosage: 100.0MG UNKNOWN
     Route: 065
  4. SALBUTAMOL SULFATE [Suspect]
     Active Substance: ALBUTEROL SULFATE
     Indication: ASTHMA
     Route: 065

REACTIONS (3)
  - Therapeutic product effect incomplete [Unknown]
  - Asthma [Unknown]
  - Blood count abnormal [Unknown]
